FAERS Safety Report 15956033 (Version 3)
Quarter: 2019Q1

REPORT INFORMATION
  Report Type: Spontaneous
  Country: DE (occurrence: DE)
  Receive Date: 20190213
  Receipt Date: 20190314
  Transmission Date: 20190417
  Serious: Yes (Other)
  Sender: FDA-Public Use
  Company Number: DE-BRISTOL-MYERS SQUIBB COMPANY-BMS-2018-119528

PATIENT
  Sex: Male
  Weight: 53 kg

DRUGS (2)
  1. ELIQUIS [Suspect]
     Active Substance: APIXABAN
     Indication: PRODUCT USED FOR UNKNOWN INDICATION
     Dosage: 2.5 MG, BID
     Route: 050
     Dates: start: 201809
  2. ELIQUIS [Suspect]
     Active Substance: APIXABAN
     Indication: CEREBROVASCULAR ACCIDENT PROPHYLAXIS
     Dosage: 5 MG, BID
     Route: 050

REACTIONS (7)
  - Failure to suspend medication [Unknown]
  - Abdominal distension [Unknown]
  - Synovitis [Unknown]
  - Abdominal pain [Unknown]
  - Arthralgia [Unknown]
  - Gingival bleeding [Unknown]
  - Prescribed underdose [Unknown]
